FAERS Safety Report 15482974 (Version 1)
Quarter: 2018Q4

REPORT INFORMATION
  Report Type: Spontaneous
  Country: US (occurrence: US)
  Receive Date: 20181010
  Receipt Date: 20181010
  Transmission Date: 20190205
  Serious: No
  Sender: FDA-Public Use
  Company Number: None

PATIENT
  Sex: Female

DRUGS (17)
  1. PRAVASTATIN. [Concomitant]
     Active Substance: PRAVASTATIN
  2. CALCIUM D [Concomitant]
     Active Substance: CALCIUM\VITAMIN D
  3. FOLBEE PLUS [Concomitant]
  4. VITAMIN D3 [Concomitant]
     Active Substance: CHOLECALCIFEROL
  5. PLAVIX [Concomitant]
     Active Substance: CLOPIDOGREL BISULFATE
  6. ZETIA [Concomitant]
     Active Substance: EZETIMIBE
  7. URSODIOL. [Concomitant]
     Active Substance: URSODIOL
  8. GABAPENTIN. [Concomitant]
     Active Substance: GABAPENTIN
  9. OCALIVA [Suspect]
     Active Substance: OBETICHOLIC ACID
     Indication: PRIMARY BILIARY CHOLANGITIS
     Route: 048
     Dates: start: 20170228
  10. NAMENDA [Concomitant]
     Active Substance: MEMANTINE HYDROCHLORIDE
  11. L-ARGININE [Concomitant]
     Active Substance: ARGININE
  12. VIT A [Concomitant]
  13. PANTOPRAZOLE [Concomitant]
     Active Substance: PANTOPRAZOLE
  14. GLUCOSAMINE [Concomitant]
     Active Substance: GLUCOSAMINE
  15. PRESERVISION CAP [Concomitant]
  16. COUMADIN [Concomitant]
     Active Substance: WARFARIN SODIUM
  17. COQ10 [Concomitant]
     Active Substance: UBIDECARENONE

REACTIONS (1)
  - Ovarian cyst [None]
